FAERS Safety Report 24805575 (Version 2)
Quarter: 2025Q1

REPORT INFORMATION
  Report Type: Report from Study
  Country: US (occurrence: US)
  Receive Date: 20250103
  Receipt Date: 20250221
  Transmission Date: 20250409
  Serious: Yes (Other)
  Sender: BIOGEN
  Company Number: US-BIOGEN-2024BI01294793

PATIENT
  Age: 48 Year
  Sex: Female

DRUGS (3)
  1. VUMERITY [Suspect]
     Active Substance: DIROXIMEL FUMARATE
     Indication: Multiple sclerosis
     Dosage: STARTING DOSE
     Route: 050
     Dates: start: 20241217, end: 20241223
  2. VUMERITY [Suspect]
     Active Substance: DIROXIMEL FUMARATE
     Route: 050
     Dates: start: 20241224
  3. VUMERITY [Suspect]
     Active Substance: DIROXIMEL FUMARATE
     Dosage: MAINTENANCE DOSE
     Route: 050
     Dates: start: 20241217

REACTIONS (9)
  - Pleural effusion [Recovered/Resolved]
  - Toxicity to various agents [Recovered/Resolved]
  - Chest pain [Unknown]
  - Vision blurred [Unknown]
  - Dizziness [Unknown]
  - Flushing [Recovered/Resolved with Sequelae]
  - Pruritus [Recovered/Resolved]
  - Nausea [Unknown]
  - Sedation [Unknown]

NARRATIVE: CASE EVENT DATE: 20241217
